FAERS Safety Report 16582546 (Version 1)
Quarter: 2019Q3

REPORT INFORMATION
  Report Type: Spontaneous
  Country: US (occurrence: US)
  Receive Date: 20190603
  Receipt Date: 20190603
  Transmission Date: 20191004
  Serious: No
  Sender: FDA-Public Use
  Company Number: None

PATIENT

DRUGS (2)
  1. PAROXETINE HCL PAROXETINE [Suspect]
     Active Substance: PAROXETINE HYDROCHLORIDE
  2. PANTOPRAZOLE SODIUM PANTOPRAZOLE 20MG [Suspect]
     Active Substance: PANTOPRAZOLE SODIUM

REACTIONS (6)
  - Product dispensing error [None]
  - Withdrawal syndrome [None]
  - Feeling abnormal [None]
  - Wrong product administered [None]
  - Sleep disorder [None]
  - Anxiety [None]
